FAERS Safety Report 9530994 (Version 1)
Quarter: 2013Q3

REPORT INFORMATION
  Report Type: Report from Study
  Country: US (occurrence: US)
  Receive Date: 20130918
  Receipt Date: 20130918
  Transmission Date: 20140515
  Serious: Yes (Hospitalization)
  Sender: FDA-Public Use
  Company Number: US-ABBVIE-13P-163-1147338-00

PATIENT
  Age: 63 Year
  Sex: Female
  Weight: 113.5 kg

DRUGS (5)
  1. HUMIRA [Suspect]
     Indication: RHEUMATOID ARTHRITIS
     Dates: start: 2008, end: 201308
  2. HUMIRA [Suspect]
     Dates: start: 20130910
  3. METHOTREXATE [Suspect]
     Indication: RHEUMATOID ARTHRITIS
     Dates: start: 2008, end: 201301
  4. METOPROLOL [Concomitant]
     Indication: HYPERTENSION
  5. METOPROLOL [Concomitant]
     Indication: ARRHYTHMIA

REACTIONS (3)
  - Jaundice [Recovered/Resolved]
  - Urinary tract infection [Recovered/Resolved]
  - Alopecia [Recovering/Resolving]
